FAERS Safety Report 18054268 (Version 3)
Quarter: 2020Q3

REPORT INFORMATION
  Report Type: Report from Study
  Country: AT (occurrence: AT)
  Receive Date: 20200722
  Receipt Date: 20200810
  Transmission Date: 20201103
  Serious: Yes (Other)
  Sender: FDA-Public Use
  Company Number: AT-EMD SERONO-9174429

PATIENT
  Age: 27 Year
  Sex: Female

DRUGS (4)
  1. MAVENCLAD [Suspect]
     Active Substance: CLADRIBINE
     Dosage: SECOND YEAR FIRST WEEK THERAPY
     Dates: start: 20200115, end: 20200119
  2. MAVENCLAD [Suspect]
     Active Substance: CLADRIBINE
     Dosage: FIRST YEAR SECOND WEEK THERAPY
     Dates: start: 20190208, end: 20190212
  3. MAVENCLAD [Suspect]
     Active Substance: CLADRIBINE
     Indication: MULTIPLE SCLEROSIS
     Dosage: FIRST YEAR FIRST WEEK THERAPY
     Dates: start: 20190109, end: 20190113
  4. MAVENCLAD [Suspect]
     Active Substance: CLADRIBINE
     Dosage: SECOND YEAR SECOND WEEK THERAPY
     Dates: start: 20200214, end: 20200218

REACTIONS (1)
  - Malignant melanoma stage I [Recovered/Resolved]

NARRATIVE: CASE EVENT DATE: 20200414
